FAERS Safety Report 7439722-7 (Version None)
Quarter: 2011Q2

REPORT INFORMATION
  Report Type: 
  Country: None (occurrence: None)
  Receive Date: 20110427
  Receipt Date: 20110421
  Transmission Date: 20111010
  Serious: Yes (Death, Hospitalization)
  Sender: FDA-Public Use
  Company Number: US-CELGENEUS-163-21880-11043023

PATIENT
  Age: 61 Year
  Sex: Female

DRUGS (4)
  1. DILAUDID [Concomitant]
     Route: 065
  2. REVLIMID [Suspect]
     Indication: MULTIPLE MYELOMA
     Dosage: 15 MILLIGRAM
     Route: 048
     Dates: start: 20090101, end: 20090901
  3. HYDROMORPHONE [Concomitant]
     Route: 065
  4. ONDANSETRON [Concomitant]
     Route: 065

REACTIONS (2)
  - DEATH [None]
  - MULTIPLE MYELOMA [None]
